FAERS Safety Report 21511632 (Version 1)
Quarter: 2022Q4

REPORT INFORMATION
  Report Type: Spontaneous
  Country: US (occurrence: US)
  Receive Date: 20221027
  Receipt Date: 20221027
  Transmission Date: 20230112
  Serious: No
  Sender: FDA-Public Use
  Company Number: US-TEVA-2022-US-2819437

PATIENT

DRUGS (1)
  1. DEXTROAMPHETAMINE SULFATE [Suspect]
     Active Substance: DEXTROAMPHETAMINE SULFATE
     Indication: Product used for unknown indication
     Dosage: STRENGTH: 10 MG
     Route: 065

REACTIONS (5)
  - Palpitations [Unknown]
  - Hyperhidrosis [Unknown]
  - Heart rate increased [Unknown]
  - Headache [Unknown]
  - Drug effect less than expected [Unknown]
